FAERS Safety Report 4279398-3 (Version None)
Quarter: 2004Q1

REPORT INFORMATION
  Report Type: 
  Country: None (occurrence: None)
  Receive Date: 20040127
  Receipt Date: 20021227
  Transmission Date: 20041129
  Serious: No
  Sender: FDA-Public Use
  Company Number: US-BRISTOL-MYERS SQUIBB COMPANY-12153318

PATIENT
  Age: 70 Year
  Sex: Female
  Weight: 54 kg

DRUGS (8)
  1. DOVONEX [Suspect]
     Indication: PSORIASIS
     Route: 061
  2. LIDEX [Suspect]
     Indication: PSORIASIS
     Route: 061
  3. ELOCON [Suspect]
     Indication: PSORIASIS
     Route: 061
  4. FOSAMAX [Concomitant]
  5. CALCIUM [Concomitant]
  6. MULTI-VITAMIN [Concomitant]
  7. MINERAL TAB [Concomitant]
     Route: 048
  8. CHINESE HERBS [Concomitant]

REACTIONS (1)
  - CONTUSION [None]
